FAERS Safety Report 5644795-8 (Version None)
Quarter: 2008Q1

REPORT INFORMATION
  Report Type: 
  Country: None (occurrence: None)
  Receive Date: 20080229
  Receipt Date: 20070803
  Transmission Date: 20080703
  Serious: No
  Sender: FDA-Public Use
  Company Number: A0668792A

PATIENT

DRUGS (1)
  1. VALTREX [Suspect]
     Indication: HERPES ZOSTER

REACTIONS (2)
  - HERPES ZOSTER [None]
  - RASH [None]
